FAERS Safety Report 5626451-5 (Version None)
Quarter: 2008Q1

REPORT INFORMATION
  Report Type: 
  Country: None (occurrence: None)
  Receive Date: 20080214
  Receipt Date: 20071228
  Transmission Date: 20080703
  Serious: Yes (Congenital Anomaly)
  Sender: FDA-Public Use
  Company Number: FR-JNJFOC-20080202659

PATIENT

DRUGS (7)
  1. IXPRIM [Suspect]
     Indication: DRUG EXPOSURE DURING PREGNANCY
     Route: 064
     Dates: start: 20051216, end: 20060115
  2. ACETYLCYSTEINE [Suspect]
     Indication: DRUG EXPOSURE DURING PREGNANCY
     Route: 064
  3. HEXAPNEUMINE [Suspect]
     Indication: DRUG EXPOSURE DURING PREGNANCY
     Route: 064
  4. MODANE [Suspect]
     Indication: DRUG EXPOSURE DURING PREGNANCY
     Route: 064
  5. MOVICOL [Suspect]
     Indication: DRUG EXPOSURE DURING PREGNANCY
     Route: 064
  6. MOXIFLOXACIN HCL [Suspect]
     Indication: DRUG EXPOSURE DURING PREGNANCY
     Route: 064
  7. PREDNAZOLINE [Suspect]
     Indication: DRUG EXPOSURE DURING PREGNANCY
     Route: 064

REACTIONS (3)
  - CARDIOMYOPATHY NEONATAL [None]
  - CONGENITAL MITOCHONDRIAL CYTOPATHY [None]
  - DRUG EXPOSURE DURING PREGNANCY [None]
